FAERS Safety Report 5951555-7 (Version None)
Quarter: 2008Q4

REPORT INFORMATION
  Report Type: 
  Country: None (occurrence: None)
  Receive Date: 20081110
  Receipt Date: 20080310
  Transmission Date: 20090506
  Serious: Yes (Other)
  Sender: FDA-Public Use
  Company Number: 6041495

PATIENT
  Age: 77 Year
  Sex: Female

DRUGS (3)
  1. BISOPROLOL FUMARATE [Suspect]
     Indication: ANGINA PECTORIS
     Dosage: (1 IN 1 D)
     Route: 048
  2. BISOPROLOL FUMARATE [Suspect]
     Indication: HYPERTENSION
     Dosage: (1 IN 1 D)
     Route: 048
  3. BENDROFLUMETHIAZIDE (BENDROFLUMETHIAZIDE) [Concomitant]

REACTIONS (5)
  - DYSPNOEA [None]
  - FEELING ABNORMAL [None]
  - PALPITATIONS [None]
  - PRODUCT COUNTERFEIT [None]
  - PRODUCT QUALITY ISSUE [None]
